FAERS Safety Report 16872787 (Version 1)
Quarter: 2019Q4

REPORT INFORMATION
  Report Type: Spontaneous
  Country: US (occurrence: US)
  Receive Date: 20190807
  Receipt Date: 20190807
  Transmission Date: 20200122
  Serious: No
  Sender: FDA-Public Use
  Company Number: None

PATIENT
  Age: 43 Year
  Sex: Male

DRUGS (1)
  1. CHORIONIC GONADOTROPIN [Suspect]
     Active Substance: CHORIOGONADOTROPIN ALFA
     Indication: INFERTILITY
     Dosage: ?          OTHER FREQUENCY:UNKNOWN;?
     Route: 030
     Dates: start: 201904

REACTIONS (2)
  - Product storage error [None]
  - Drug ineffective [None]

NARRATIVE: CASE EVENT DATE: 20190807
